FAERS Safety Report 12440414 (Version 1)
Quarter: 2016Q2

REPORT INFORMATION
  Report Type: Report from Study
  Country: DE (occurrence: DE)
  Receive Date: 20160606
  Receipt Date: 20160606
  Transmission Date: 20160815
  Serious: Yes (Life-Threatening, Hospitalization, Other)
  Sender: FDA-Public Use
  Company Number: DE-ABBVIE-16K-062-1567121-00

PATIENT
  Age: 45 Year
  Sex: Female

DRUGS (1)
  1. HUMIRA [Suspect]
     Active Substance: ADALIMUMAB
     Indication: CROHN^S DISEASE
     Route: 058
     Dates: start: 201404, end: 20151220

REACTIONS (3)
  - Peritonitis [Recovering/Resolving]
  - Hysterectomy [Recovering/Resolving]
  - Postoperative adhesion [Not Recovered/Not Resolved]

NARRATIVE: CASE EVENT DATE: 201512
